FAERS Safety Report 6017805-6 (Version None)
Quarter: 2008Q4

REPORT INFORMATION
  Report Type: 
  Country: None (occurrence: None)
  Receive Date: 20081223
  Receipt Date: 20081216
  Transmission Date: 20090506
  Serious: Yes (Hospitalization)
  Sender: FDA-Public Use
  Company Number: AU-JNJFOC-20081204926

PATIENT
  Age: 56 Year
  Sex: Male

DRUGS (2)
  1. REMICADE [Suspect]
     Dosage: ADDITIONAL 3 OR 4 DOSES
     Route: 042
  2. REMICADE [Suspect]
     Indication: CROHN'S DISEASE
     Dosage: INDUCTION DOSES AT WEEK 0, 2, 6 WEEKS.
     Route: 042

REACTIONS (3)
  - NEOPLASM [None]
  - SEPSIS [None]
  - TUBERCULOSIS [None]
